FAERS Safety Report 8873232 (Version 1)
Quarter: 2012Q4

REPORT INFORMATION
  Report Type: 
  Country: US (occurrence: US)
  Receive Date: 20121023
  Receipt Date: 20121023
  Transmission Date: 20130627
  Serious: Yes (Hospitalization)
  Sender: FDA-Public Use
  Company Number: US-ASTELLAS-2012US005231

PATIENT
  Age: 52 Year
  Sex: Female
  Weight: 54 kg

DRUGS (5)
  1. PROGRAF [Suspect]
     Indication: RENAL TRANSPLANT
     Dosage: 2 mg, bid
     Route: 048
     Dates: start: 20050719
  2. PROGRAF [Suspect]
     Dosage: 0.5 mg, UID/QD
     Route: 048
     Dates: start: 20050719
  3. PREDNISONE [Concomitant]
     Indication: RENAL TRANSPLANT
     Dosage: 5 mg, UID/QD
     Route: 048
     Dates: start: 20050719
  4. MYFORTIC [Concomitant]
     Indication: RENAL TRANSPLANT
     Dosage: 180 mg, bid
     Route: 048
     Dates: start: 20050719
  5. ENALAPRIL [Concomitant]
     Indication: BLOOD PRESSURE
     Dosage: 10 mg, UID/QD
     Route: 048
     Dates: start: 20050719

REACTIONS (1)
  - Influenza [Unknown]
